FAERS Safety Report 4513164-6 (Version None)
Quarter: 2004Q4

REPORT INFORMATION
  Report Type: 
  Country: None (occurrence: None)
  Receive Date: 20040928
  Receipt Date: 20040709
  Transmission Date: 20050328
  Serious: No
  Sender: FDA-Public Use
  Company Number: 04P-163-0266553-00

PATIENT
  Age: 75 Year
  Sex: Female
  Weight: 63.9572 kg

DRUGS (9)
  1. HUMIRA [Suspect]
     Indication: RHEUMATOID ARTHRITIS
     Dosage: 40 MG, 1 IN 2 WK, SUBCUTANEOUS
     Route: 058
     Dates: start: 20040609, end: 20040609
  2. PREDNISONE [Concomitant]
  3. AZATHIOPRINE [Concomitant]
  4. LOVASTATIN [Concomitant]
  5. LEVOTHYROXINE SODIUM [Concomitant]
  6. ATENOLOL [Concomitant]
  7. PROPACET 100 [Concomitant]
  8. TEMAZEPAM [Concomitant]
  9. ANTIBIOTICS [Concomitant]

REACTIONS (1)
  - BURNING SENSATION [None]
